FAERS Safety Report 23535911 (Version 3)
Quarter: 2024Q1

REPORT INFORMATION
  Report Type: Spontaneous
  Country: PL (occurrence: PL)
  Receive Date: 20240219
  Receipt Date: 20240326
  Transmission Date: 20240410
  Serious: Yes (Hospitalization, Other)
  Sender: FDA-Public Use
  Company Number: PL-JNJFOC-20240218830

PATIENT
  Age: 43 Year
  Sex: Female
  Weight: 74 kg

DRUGS (14)
  1. OPSUMIT [Suspect]
     Active Substance: MACITENTAN
     Indication: Pulmonary arterial hypertension
     Dosage: IN THE MORNING WITH A MEAL
     Route: 048
     Dates: start: 20230225
  2. OPSUMIT [Suspect]
     Active Substance: MACITENTAN
     Route: 048
     Dates: start: 202304
  3. UPTRAVI [Suspect]
     Active Substance: SELEXIPAG
     Indication: Pulmonary arterial hypertension
     Route: 048
     Dates: start: 20221201
  4. UPTRAVI [Suspect]
     Active Substance: SELEXIPAG
     Route: 048
     Dates: start: 20230225
  5. UPTRAVI [Suspect]
     Active Substance: SELEXIPAG
     Route: 048
     Dates: start: 202304
  6. UPTRAVI [Suspect]
     Active Substance: SELEXIPAG
     Route: 048
     Dates: start: 202312
  7. SILDENAFIL [Suspect]
     Active Substance: SILDENAFIL
     Indication: Pulmonary arterial hypertension
     Dosage: 20MG 3X1 TABL, DOSE BY , AMP 5MG/ML, FLOW 42 UL/H DOSE 50 NG/KG/MIN
     Route: 065
     Dates: start: 202201
  8. SILDENAFIL [Suspect]
     Active Substance: SILDENAFIL
     Dosage: 20MG 3X1 TABL, DOSE BY , AMP 5MG/ML, FLOW 42 UL/H DOSE 50 NG/KG/MIN
     Route: 065
     Dates: start: 202205
  9. SILDENAFIL [Suspect]
     Active Substance: SILDENAFIL
     Dosage: 20MG 3X1 TABLET
     Route: 065
     Dates: start: 20230225
  10. SILDENAFIL [Suspect]
     Active Substance: SILDENAFIL
     Route: 065
     Dates: start: 202304
  11. ZOFRAN [Concomitant]
     Active Substance: ONDANSETRON HYDROCHLORIDE
     Dosage: 4MG 3X1
     Dates: start: 202201
  12. KETOPROFEN [Concomitant]
     Active Substance: KETOPROFEN
     Dates: start: 202201
  13. DEXAK SL [Concomitant]
  14. BOSENTAN [Concomitant]
     Active Substance: BOSENTAN
     Dosage: 2 X 62.5 MG
     Route: 048
     Dates: start: 202205

REACTIONS (10)
  - Pericardial effusion [Unknown]
  - Syncope [Recovering/Resolving]
  - Hospitalisation [Unknown]
  - Adjustment disorder [Unknown]
  - Nausea [Unknown]
  - Asthenia [Unknown]
  - Headache [Recovering/Resolving]
  - Palpitations [Recovering/Resolving]
  - Abdominal pain [Recovering/Resolving]
  - Dizziness [Recovering/Resolving]

NARRATIVE: CASE EVENT DATE: 20230701
